FAERS Safety Report 17468490 (Version 1)
Quarter: 2020Q1

REPORT INFORMATION
  Report Type: Spontaneous
  Country: US (occurrence: US)
  Receive Date: 20200216
  Receipt Date: 20200216
  Transmission Date: 20200409
  Serious: No
  Sender: FDA-Public Use
  Company Number: None

PATIENT
  Age: 55 Year
  Sex: Male

DRUGS (1)
  1. HUMIRA [Suspect]
     Active Substance: ADALIMUMAB
     Indication: ARTHRITIS
     Dosage: ?         FREQUENCY: EVERY 14 DAYS  OTHER ROUTE:UNDER THE SKIN?
     Dates: start: 20190821

REACTIONS (2)
  - Influenza [None]
  - Pharyngitis streptococcal [None]

NARRATIVE: CASE EVENT DATE: 20200201
